FAERS Safety Report 19956067 (Version 1)
Quarter: 2021Q4

REPORT INFORMATION
  Report Type: Spontaneous
  Country: DE (occurrence: DE)
  Receive Date: 20211014
  Receipt Date: 20211014
  Transmission Date: 20220304
  Serious: Yes (Other)
  Sender: FDA-Public Use
  Company Number: DE-FRESENIUS KABI-FK202111066

PATIENT
  Age: 10 Week
  Sex: Female

DRUGS (2)
  1. ROCURONIUM [Suspect]
     Active Substance: ROCURONIUM BROMIDE
     Indication: Neuromuscular blockade
     Dosage: 5MG (EQUIVALENT TO 1.7 MG/KG OF BODY WEIGHT)
     Route: 065
  2. SEVOFLURANE [Concomitant]
     Active Substance: SEVOFLURANE
     Indication: Anaesthesia

REACTIONS (2)
  - Accidental overdose [Unknown]
  - Neuromuscular blockade [Recovered/Resolved]
